FAERS Safety Report 5680260-X (Version None)
Quarter: 2008Q1

REPORT INFORMATION
  Report Type: 
  Country: None (occurrence: None)
  Receive Date: 20080326
  Receipt Date: 20080315
  Transmission Date: 20080703
  Serious: Yes (Other)
  Sender: FDA-Public Use
  Company Number: GB-ROCHE-553503

PATIENT
  Age: 51 Year
  Sex: Female
  Weight: 75.3 kg

DRUGS (1)
  1. ORLISTAT [Suspect]
     Indication: OBESITY
     Route: 048
     Dates: start: 20070327

REACTIONS (1)
  - TRANSIENT ISCHAEMIC ATTACK [None]
